FAERS Safety Report 9493237 (Version 3)
Quarter: 2013Q3

REPORT INFORMATION
  Report Type: Spontaneous
  Country: US (occurrence: US)
  Receive Date: 20130902
  Receipt Date: 20130910
  Transmission Date: 20140515
  Serious: Yes (Death, Other)
  Sender: FDA-Public Use
  Company Number: PHHY2013US094021

PATIENT
  Age: 23 Month
  Sex: 0
  Weight: 12.5 kg

DRUGS (12)
  1. CARBAMAZEPINE [Suspect]
     Indication: CONVULSION
     Dosage: 150 MG, DAILY ON DAY 1
  2. CARBAMAZEPINE [Interacting]
     Dosage: 200 MG, DAILY ON DAY 5
  3. CARBAMAZEPINE [Interacting]
     Dosage: 200 MG, DAILY ON DAY 35
  4. CARBAMAZEPINE [Interacting]
     Dosage: 300 MG, DAILY ON DAY 69
  5. CARBAMAZEPINE [Interacting]
     Dosage: 400 MG, DAILY ON DAY 85
  6. CARBAMAZEPINE [Interacting]
     Dosage: 500 MG, DAILY ON DAY 98
  7. CARBAMAZEPINE [Interacting]
     Dosage: 500 MG, DAILY ON DAY 127
  8. PHENYTOIN [Interacting]
     Indication: CONVULSION
     Dosage: 125 MG, DAILY ON DAY 1
  9. PHENYTOIN [Interacting]
     Dosage: 100 MG, DAILY ON DAY 5
  10. PHENYTOIN [Interacting]
     Dosage: 100 MG, DAILY ON DAY 35
  11. PHENYTOIN [Interacting]
     Dosage: 100 MG, DAILY ON DAY 69
  12. PHENYTOIN [Interacting]
     Dosage: 100 MG, DAILY ON DAY 85

REACTIONS (7)
  - Toxicity to various agents [Fatal]
  - Anticonvulsant drug level increased [Fatal]
  - Overdose [Fatal]
  - Cyanosis [Fatal]
  - Unresponsive to stimuli [Fatal]
  - Cardiac arrest [Fatal]
  - Drug interaction [Unknown]
